FAERS Safety Report 18300881 (Version 1)
Quarter: 2020Q3

REPORT INFORMATION
  Report Type: Spontaneous
  Country: ES (occurrence: ES)
  Receive Date: 20200923
  Receipt Date: 20200923
  Transmission Date: 20201103
  Serious: Yes (Other)
  Sender: FDA-Public Use
  Company Number: ES-ACCORD-201319

PATIENT
  Age: 64 Year
  Sex: Male

DRUGS (4)
  1. HYDROXYCHLOROQUINE [Suspect]
     Active Substance: HYDROXYCHLOROQUINE
     Indication: COVID-19 PNEUMONIA
     Dosage: 400 MG TWICE A DAY FIRST DAY FOLLOWED BY 200 MG TWICE A DAY FOR 10 DAYS
  2. LOPINAVIR/RITONAVIR [Suspect]
     Active Substance: LOPINAVIR\RITONAVIR
     Indication: COVID-19 PNEUMONIA
     Dosage: 200MG/50MG TWICE A DAY
  3. TEICOPLANIN [Suspect]
     Active Substance: TEICOPLANIN
     Indication: COVID-19 PNEUMONIA
  4. HYDROXYCHLOROQUINE [Suspect]
     Active Substance: HYDROXYCHLOROQUINE
     Indication: COVID-19 PNEUMONIA

REACTIONS (2)
  - Off label use [Unknown]
  - Erythema [Recovered/Resolved]
